FAERS Safety Report 6449604-5 (Version None)
Quarter: 2009Q4

REPORT INFORMATION
  Report Type: 
  Country: None (occurrence: None)
  Receive Date: 20091120
  Receipt Date: 20091111
  Transmission Date: 20100525
  Serious: Yes (Other)
  Sender: FDA-Public Use
  Company Number: US-AMGEN-QUU374093

PATIENT
  Sex: Male
  Weight: 99.9 kg

DRUGS (5)
  1. ENBREL [Suspect]
     Indication: PSORIASIS
  2. HUMIRA [Suspect]
     Indication: PSORIASIS
     Dates: start: 20090619
  3. METOPROLOL TARTRATE [Concomitant]
  4. SIMVASTATIN [Concomitant]
  5. METOPROLOL SUCCINATE [Concomitant]

REACTIONS (7)
  - ARTHRALGIA [None]
  - DRUG INEFFECTIVE [None]
  - FAECES DISCOLOURED [None]
  - HAEMATOCHEZIA [None]
  - MOBILITY DECREASED [None]
  - PAIN [None]
  - PSORIASIS [None]
